FAERS Safety Report 25032142 (Version 2)
Quarter: 2025Q2

REPORT INFORMATION
  Report Type: Spontaneous
  Country: BR (occurrence: BR)
  Receive Date: 20250303
  Receipt Date: 20250425
  Transmission Date: 20250716
  Serious: Yes (Other)
  Sender: PFIZER
  Company Number: BR-PFIZER INC-202500044557

PATIENT
  Age: 57 Year
  Sex: Male
  Weight: 80.65 kg

DRUGS (5)
  1. RUXIENCE [Suspect]
     Active Substance: RITUXIMAB-PVVR
     Indication: Hairy cell leukaemia
     Route: 042
     Dates: start: 20250212, end: 20250212
  2. ACETAMINOPHEN [Concomitant]
     Active Substance: ACETAMINOPHEN
     Indication: Chemotherapy side effect prophylaxis
     Route: 048
     Dates: start: 20250212, end: 20250212
  3. DIPHENHYDRAMINE [Concomitant]
     Active Substance: DIPHENHYDRAMINE
     Indication: Chemotherapy side effect prophylaxis
     Route: 042
  4. HYDROCORTISONE [Concomitant]
     Active Substance: HYDROCORTISONE
     Indication: Chemotherapy side effect prophylaxis
     Route: 040
     Dates: start: 20250212, end: 20250212
  5. CLADRIBINE [Concomitant]
     Active Substance: CLADRIBINE
     Indication: Hairy cell leukaemia
     Route: 042
     Dates: start: 20250212, end: 20250212

REACTIONS (3)
  - Tremor [Recovering/Resolving]
  - Hypertension [Recovering/Resolving]
  - Off label use [Unknown]

NARRATIVE: CASE EVENT DATE: 20250212
